FAERS Safety Report 8564578-9 (Version None)
Quarter: 2012Q3

REPORT INFORMATION
  Report Type: 
  Country: None (occurrence: None)
  Receive Date: 20120803
  Receipt Date: 20120801
  Transmission Date: 20120928
  Serious: Yes (Other)
  Sender: FDA-Public Use
  Company Number: US-PFIZER INC-2012187343

PATIENT
  Sex: Female
  Weight: 81.6 kg

DRUGS (6)
  1. POTASSIUM [Concomitant]
     Dosage: UNK
  2. VITAMIN B-12 [Concomitant]
     Dosage: UNK
  3. METHOTREXATE [Concomitant]
     Dosage: UNK
  4. CELEBREX [Suspect]
     Indication: ARTHRITIS
     Dosage: 400 MG, 1X/DAY
     Route: 048
     Dates: start: 19990101, end: 20060101
  5. PREDNISONE [Concomitant]
     Dosage: UNK
  6. FOLIC ACID [Concomitant]
     Dosage: UNK

REACTIONS (5)
  - LARGE INTESTINAL HAEMORRHAGE [None]
  - GASTRIC ULCER [None]
  - RENAL DISORDER [None]
  - GASTRIC DISORDER [None]
  - HAEMORRHAGE [None]
